FAERS Safety Report 5057799-3 (Version None)
Quarter: 2006Q3

REPORT INFORMATION
  Report Type: 
  Country: None (occurrence: None)
  Receive Date: 20060721
  Receipt Date: 20060222
  Transmission Date: 20061208
  Serious: No
  Sender: FDA-Public Use
  Company Number: US-GLAXOSMITHKLINE-A0594779A

PATIENT
  Age: 61 Year
  Sex: Female

DRUGS (6)
  1. AVANDIA [Suspect]
     Dosage: 4MG PER DAY
     Route: 048
  2. LESCOL [Concomitant]
  3. NEXIUM [Concomitant]
  4. ALLEGRA [Concomitant]
  5. EVISTA [Concomitant]
  6. SINGULAIR [Concomitant]

REACTIONS (3)
  - ARTHRITIS [None]
  - FATIGUE [None]
  - LOCAL SWELLING [None]
